FAERS Safety Report 10040510 (Version 1)
Quarter: 2014Q1

REPORT INFORMATION
  Report Type: Spontaneous
  Country: US (occurrence: US)
  Receive Date: 20140327
  Receipt Date: 20140327
  Transmission Date: 20141002
  Serious: No
  Sender: FDA-Public Use
  Company Number: US-TEVA-402992USA

PATIENT
  Sex: Female
  Weight: 88.53 kg

DRUGS (6)
  1. BACTRIM [Suspect]
  2. SOMAVERT [Concomitant]
     Indication: ACROMEGALY
     Dosage: 2-20MG VIALS
  3. LEVOTHYROXIN [Concomitant]
     Indication: HYPOTHYROIDISM
  4. LINZESS [Concomitant]
  5. PULMICORT AER [Concomitant]
  6. MULTIVITAMIN [Concomitant]

REACTIONS (1)
  - Hypersensitivity [Unknown]
